FAERS Safety Report 24014954 (Version 6)
Quarter: 2025Q2

REPORT INFORMATION
  Report Type: Report from Study
  Country: CN (occurrence: CN)
  Receive Date: 20240626
  Receipt Date: 20250605
  Transmission Date: 20250717
  Serious: Yes (Death, Other)
  Sender: ROCHE
  Company Number: CN-ROCHE-3569287

PATIENT
  Age: 79 Year
  Sex: Female
  Weight: 59 kg

DRUGS (88)
  1. POLATUZUMAB VEDOTIN [Suspect]
     Active Substance: POLATUZUMAB VEDOTIN
     Indication: Diffuse large B-cell lymphoma
     Dosage: ON 02/FEB/2024, RECEIVED MOST RECENT DOSE POLATUZUMAB 60 MG
     Route: 042
     Dates: start: 20240202, end: 20240202
  2. LENALIDOMIDE [Suspect]
     Active Substance: LENALIDOMIDE
     Indication: Diffuse large B-cell lymphoma
     Dosage: DATE OF MOST RECENT DOSE OF STUDY DRUG 07-FEB-2024 WITH DOSE OF 25 MG
     Route: 048
     Dates: end: 202402
  3. ZANUBRUTINIB [Suspect]
     Active Substance: ZANUBRUTINIB
     Indication: Diffuse large B-cell lymphoma
     Dosage: DATE OF MOST RECENT DOSE OF STUDY DRUG 08-FEB-2024 WITH DOSE OF 80 MG
     Route: 048
     Dates: end: 202402
  4. RITUXIMAB [Suspect]
     Active Substance: RITUXIMAB
     Indication: Diffuse large B-cell lymphoma
     Route: 042
     Dates: end: 20240208
  5. DOPAMINE HYDROCHLORIDE [Concomitant]
     Active Substance: DOPAMINE HYDROCHLORIDE
     Route: 042
     Dates: start: 20240218, end: 20240218
  6. LIGHT LIQUID PARAFFIN [Concomitant]
     Route: 048
     Dates: start: 20240114, end: 20240212
  7. URSODIOL [Concomitant]
     Active Substance: URSODIOL
     Indication: Jaundice
     Route: 048
     Dates: start: 20240114, end: 20240120
  8. TRAMADOL HYDROCHLORIDE SUSTAINED RELEASE TABLETS (II) [Concomitant]
     Indication: Analgesic therapy
     Route: 048
     Dates: start: 20240114, end: 20240121
  9. TRAMADOL HYDROCHLORIDE SUSTAINED RELEASE TABLETS (II) [Concomitant]
     Route: 048
     Dates: start: 20240215, end: 20240215
  10. MAGNESIUM ISOGLYCYRRHIZINATE [Concomitant]
     Active Substance: MAGNESIUM ISOGLYCYRRHIZINATE
     Route: 042
     Dates: start: 20240202, end: 20240215
  11. REDUCED GLUTATHIONE [Concomitant]
     Route: 042
     Dates: start: 20240202, end: 20240208
  12. METHYLPREDNISOLONE SODIUM SUCCINATE [Concomitant]
     Active Substance: METHYLPREDNISOLONE SODIUM SUCCINATE
     Route: 042
     Dates: start: 20240115, end: 20240120
  13. METHYLPREDNISOLONE SODIUM SUCCINATE [Concomitant]
     Active Substance: METHYLPREDNISOLONE SODIUM SUCCINATE
     Route: 042
     Dates: start: 20240122, end: 20240208
  14. METHYLPREDNISOLONE SODIUM SUCCINATE [Concomitant]
     Active Substance: METHYLPREDNISOLONE SODIUM SUCCINATE
     Route: 042
     Dates: start: 20240209, end: 20240213
  15. METHYLPREDNISOLONE SODIUM SUCCINATE [Concomitant]
     Active Substance: METHYLPREDNISOLONE SODIUM SUCCINATE
     Route: 042
     Dates: start: 20240214, end: 20240214
  16. OMEPRAZOLE [Concomitant]
     Active Substance: OMEPRAZOLE
     Route: 042
     Dates: start: 20240116, end: 20240116
  17. OMEPRAZOLE [Concomitant]
     Active Substance: OMEPRAZOLE
     Route: 042
     Dates: start: 20240115, end: 20240218
  18. SODIUM GLYCEROPHOSPHATE [Concomitant]
     Active Substance: SODIUM GLYCEROPHOSPHATE
     Route: 042
     Dates: start: 20240116, end: 20240131
  19. INSULIN HUMAN [Concomitant]
     Active Substance: INSULIN HUMAN
     Route: 042
     Dates: start: 20240116, end: 20240131
  20. INSULIN HUMAN [Concomitant]
     Active Substance: INSULIN HUMAN
     Route: 042
     Dates: start: 20240119, end: 20240218
  21. DIETARY SUPPLEMENT [Concomitant]
     Active Substance: DIETARY SUPPLEMENT
     Route: 048
     Dates: start: 20240116, end: 20240117
  22. PROMETHAZINE [Concomitant]
     Active Substance: PROMETHAZINE HYDROCHLORIDE
     Route: 030
     Dates: start: 20240119, end: 20240120
  23. PROMETHAZINE [Concomitant]
     Active Substance: PROMETHAZINE HYDROCHLORIDE
     Route: 030
     Dates: start: 20240208, end: 20240209
  24. HUMAN IMMUNOGLOBULIN G [Concomitant]
     Active Substance: HUMAN IMMUNOGLOBULIN G
     Route: 042
     Dates: start: 20240122, end: 20240203
  25. HUMAN IMMUNOGLOBULIN G [Concomitant]
     Active Substance: HUMAN IMMUNOGLOBULIN G
     Route: 042
     Dates: start: 20240203, end: 20240218
  26. ALBUMIN HUMAN [Concomitant]
     Active Substance: ALBUMIN HUMAN
     Route: 042
     Dates: start: 20240125, end: 20240127
  27. ALBUMIN HUMAN [Concomitant]
     Active Substance: ALBUMIN HUMAN
     Route: 042
     Dates: start: 20240129, end: 20240129
  28. ALBUMIN HUMAN [Concomitant]
     Active Substance: ALBUMIN HUMAN
     Route: 042
     Dates: start: 20240202, end: 20240202
  29. ALBUMIN HUMAN [Concomitant]
     Active Substance: ALBUMIN HUMAN
     Route: 042
     Dates: start: 20240205, end: 20240205
  30. ALBUMIN HUMAN [Concomitant]
     Active Substance: ALBUMIN HUMAN
     Route: 042
     Dates: start: 20240206, end: 20240208
  31. ALBUMIN HUMAN [Concomitant]
     Active Substance: ALBUMIN HUMAN
     Route: 042
     Dates: start: 20240214, end: 20240214
  32. FUROSEMIDE [Concomitant]
     Active Substance: FUROSEMIDE
     Route: 042
     Dates: start: 20240126, end: 20240126
  33. FUROSEMIDE [Concomitant]
     Active Substance: FUROSEMIDE
     Route: 042
     Dates: start: 20240129, end: 20240129
  34. FUROSEMIDE [Concomitant]
     Active Substance: FUROSEMIDE
     Route: 042
     Dates: start: 20240130, end: 20240208
  35. FUROSEMIDE [Concomitant]
     Active Substance: FUROSEMIDE
     Route: 042
     Dates: start: 20240214, end: 20240214
  36. FUROSEMIDE [Concomitant]
     Active Substance: FUROSEMIDE
     Route: 042
     Dates: start: 20240217, end: 20240217
  37. Potassium Chloride Sustained-release Tablets [Concomitant]
     Route: 048
     Dates: start: 20240126, end: 20240126
  38. Potassium Chloride Sustained-release Tablets [Concomitant]
     Route: 048
     Dates: start: 20240129, end: 20240129
  39. Potassium Chloride Sustained-release Tablets [Concomitant]
     Route: 048
     Dates: start: 20240130, end: 20240130
  40. Potassium Chloride Sustained-release Tablets [Concomitant]
     Route: 048
     Dates: start: 20240130, end: 20240214
  41. Potassium Chloride Sustained-release Tablets [Concomitant]
     Route: 042
     Dates: start: 20240214, end: 20240214
  42. Potassium Chloride Sustained-release Tablets [Concomitant]
     Route: 042
     Dates: start: 20240215, end: 20240218
  43. Potassium Chloride Sustained-release Tablets [Concomitant]
     Route: 042
     Dates: start: 20240216, end: 20240216
  44. Potassium Chloride Sustained-release Tablets [Concomitant]
     Route: 042
     Dates: start: 20240218, end: 20240218
  45. TPIAO [Concomitant]
     Indication: Platelet count increased
     Dosage: DOSE: 150000 U
     Route: 058
     Dates: start: 20240203, end: 20240206
  46. Latamoxef sodium for injection [Concomitant]
     Route: 042
     Dates: start: 20240206, end: 20240206
  47. Latamoxef sodium for injection [Concomitant]
     Route: 042
     Dates: start: 20240207, end: 20240211
  48. AMBROXOL HYDROCHLORIDE [Concomitant]
     Active Substance: AMBROXOL HYDROCHLORIDE
     Route: 042
     Dates: start: 20240206, end: 20240218
  49. GRANULOCYTE COLONY-STIMULATING FACTOR NOS [Concomitant]
     Active Substance: GRANULOCYTE COLONY-STIMULATING FACTOR NOS
     Indication: Neutrophil count increased
     Route: 058
     Dates: start: 20240209, end: 20240212
  50. Injection vancomycin [Concomitant]
     Route: 042
     Dates: start: 20240209, end: 20240214
  51. IMIPENEM [Concomitant]
     Active Substance: IMIPENEM
     Route: 042
     Dates: start: 20240211, end: 20240211
  52. IMIPENEM [Concomitant]
     Active Substance: IMIPENEM
     Route: 042
     Dates: start: 20240212, end: 20240218
  53. PREDNISONE ACETATE [Concomitant]
     Active Substance: PREDNISONE ACETATE
     Route: 048
     Dates: start: 20240213, end: 20240215
  54. Bifidobacterium triple viable capsule [Concomitant]
     Route: 048
     Dates: start: 20240212, end: 20240214
  55. CETIRIZINE [Concomitant]
     Active Substance: CETIRIZINE HYDROCHLORIDE
     Route: 048
     Dates: start: 20240211, end: 20240214
  56. CASPOFUNGIN ACETATE [Concomitant]
     Active Substance: CASPOFUNGIN ACETATE
     Route: 042
     Dates: start: 20240213, end: 20240213
  57. CASPOFUNGIN ACETATE [Concomitant]
     Active Substance: CASPOFUNGIN ACETATE
     Route: 042
     Dates: start: 20240214, end: 20240218
  58. ENOXAPARIN SODIUM [Concomitant]
     Active Substance: ENOXAPARIN SODIUM
     Route: 058
     Dates: start: 20240214, end: 20240218
  59. ENOXAPARIN SODIUM [Concomitant]
     Active Substance: ENOXAPARIN SODIUM
     Route: 058
     Dates: start: 20240213, end: 20240213
  60. OXYCODONE AND ACETAMINOPHEN [Concomitant]
     Active Substance: ACETAMINOPHEN\OXYCODONE HYDROCHLORIDE
     Route: 048
     Dates: start: 20240113, end: 20240113
  61. OXYCONTIN [Concomitant]
     Active Substance: OXYCODONE HYDROCHLORIDE
     Route: 048
     Dates: start: 20240114, end: 20240114
  62. OXYCONTIN [Concomitant]
     Active Substance: OXYCODONE HYDROCHLORIDE
     Route: 048
     Dates: start: 20240124, end: 20240202
  63. OXYCONTIN [Concomitant]
     Active Substance: OXYCODONE HYDROCHLORIDE
     Route: 048
     Dates: start: 20240210, end: 20240211
  64. OXYCONTIN [Concomitant]
     Active Substance: OXYCODONE HYDROCHLORIDE
     Route: 048
     Dates: start: 20240120, end: 20240121
  65. LIDOCAINE HYDROCHLORIDE [Concomitant]
     Active Substance: LIDOCAINE HYDROCHLORIDE
     Route: 058
     Dates: start: 20240115, end: 20240115
  66. LIDOCAINE HYDROCHLORIDE [Concomitant]
     Active Substance: LIDOCAINE HYDROCHLORIDE
     Route: 058
     Dates: start: 20240205, end: 20240205
  67. FENTANYL TRANSDERMAL SYSTEM [Concomitant]
     Active Substance: FENTANYL
     Dates: start: 20240122, end: 20240122
  68. FENTANYL TRANSDERMAL SYSTEM [Concomitant]
     Active Substance: FENTANYL
     Dates: start: 20240125, end: 20240125
  69. ENEMA (SODIUM PHOSPHATE, DIBASIC\SODIUM PHOSPHATE, MONOBASIC) [Concomitant]
     Active Substance: SODIUM PHOSPHATE, DIBASIC\SODIUM PHOSPHATE, MONOBASIC
     Dates: start: 20240125, end: 20240125
  70. ENEMA (SODIUM PHOSPHATE, DIBASIC\SODIUM PHOSPHATE, MONOBASIC) [Concomitant]
     Active Substance: SODIUM PHOSPHATE, DIBASIC\SODIUM PHOSPHATE, MONOBASIC
     Dates: start: 20240201, end: 20240201
  71. ENEMA (SODIUM PHOSPHATE, DIBASIC\SODIUM PHOSPHATE, MONOBASIC) [Concomitant]
     Active Substance: SODIUM PHOSPHATE, DIBASIC\SODIUM PHOSPHATE, MONOBASIC
     Dates: start: 20240207, end: 20240207
  72. ENEMA (SODIUM PHOSPHATE, DIBASIC\SODIUM PHOSPHATE, MONOBASIC) [Concomitant]
     Active Substance: SODIUM PHOSPHATE, DIBASIC\SODIUM PHOSPHATE, MONOBASIC
     Dates: start: 20240216, end: 20240216
  73. Morphine Sulphate Sustained-release Tablets [Concomitant]
     Route: 048
     Dates: start: 20240202, end: 20240202
  74. Morphine Sulphate Sustained-release Tablets [Concomitant]
     Route: 048
     Dates: start: 20240204, end: 20240204
  75. Morphine Sulphate Sustained-release Tablets [Concomitant]
     Route: 048
     Dates: start: 20240209, end: 20240209
  76. Morphine Sulphate Sustained-release Tablets [Concomitant]
     Route: 048
     Dates: start: 20240213, end: 20240213
  77. Compound paracetamol tablets [Concomitant]
     Route: 048
     Dates: start: 20240202, end: 20240202
  78. Compound paracetamol tablets [Concomitant]
     Route: 048
     Dates: start: 20240211, end: 20240211
  79. PROMETHAZINE HYDROCHLORIDE [Concomitant]
     Active Substance: PROMETHAZINE HYDROCHLORIDE
     Route: 030
     Dates: start: 20240202, end: 20240202
  80. GLYCOSAMINOGLYCANS [Concomitant]
     Active Substance: GLYCOSAMINOGLYCANS
     Dates: start: 20240202, end: 20240203
  81. PALONOSETRON HYDROCHLORIDE [Concomitant]
     Active Substance: PALONOSETRON HYDROCHLORIDE
     Route: 042
     Dates: start: 20240204, end: 20240204
  82. MOMETASONE [Concomitant]
     Active Substance: MOMETASONE
     Dates: start: 20240211, end: 20240211
  83. MONTMORILLONITE [Concomitant]
     Active Substance: MONTMORILLONITE
     Route: 048
     Dates: start: 20240212, end: 20240212
  84. TORSEMIDE [Concomitant]
     Active Substance: TORSEMIDE
     Route: 042
     Dates: start: 20240216, end: 20240216
  85. INDOMETHACIN [Concomitant]
     Active Substance: INDOMETHACIN
     Dates: start: 20240217, end: 20240217
  86. COMPOUND BETAMETHASONE [Concomitant]
     Route: 030
     Dates: start: 20240213, end: 20240213
  87. Omeprazole Sodium for Injection [Concomitant]
     Route: 042
  88. Levofloxacin sodium chloride injection [Concomitant]
     Route: 042
     Dates: start: 20240213, end: 20240218

REACTIONS (8)
  - White blood cell count decreased [Recovered/Resolved]
  - Neutrophil count decreased [Not Recovered/Not Resolved]
  - Lymphocyte count decreased [Recovered/Resolved]
  - Anaemia [Not Recovered/Not Resolved]
  - Multiple organ dysfunction syndrome [Fatal]
  - Weight increased [Recovered/Resolved]
  - Pneumonia [Fatal]
  - Blood phosphorus decreased [Not Recovered/Not Resolved]

NARRATIVE: CASE EVENT DATE: 20240202
